FAERS Safety Report 18614017 (Version 1)
Quarter: 2020Q4

REPORT INFORMATION
  Report Type: Spontaneous
  Country: US (occurrence: US)
  Receive Date: 20201214
  Receipt Date: 20201214
  Transmission Date: 20210114
  Serious: Yes (Other)
  Sender: FDA-Public Use
  Company Number: US-NOVOPROD-731179

PATIENT
  Age: 83 Year
  Sex: Female

DRUGS (2)
  1. LEVEMIR [Suspect]
     Active Substance: INSULIN DETEMIR
     Indication: TYPE 2 DIABETES MELLITUS
     Dosage: 10 IU, QD
     Route: 058
     Dates: start: 20200522
  2. LEVEMIR [Suspect]
     Active Substance: INSULIN DETEMIR
     Dosage: INCREASE DOSE TO 10 UNITS TWICE A DAY
     Route: 058

REACTIONS (4)
  - Product communication issue [Unknown]
  - Product dose omission issue [Unknown]
  - Blood glucose increased [Unknown]
  - Wrong technique in product usage process [Unknown]

NARRATIVE: CASE EVENT DATE: 202005
